FAERS Safety Report 5406052-4 (Version None)
Quarter: 2007Q3

REPORT INFORMATION
  Report Type: 
  Country: None (occurrence: None)
  Receive Date: 20070806
  Receipt Date: 20070726
  Transmission Date: 20080115
  Serious: Yes (Other)
  Sender: FDA-Public Use
  Company Number: B0477804A

PATIENT
  Age: 9 Year

DRUGS (2)
  1. CEFAMEZIN [Suspect]
     Indication: INFECTION PROPHYLAXIS
     Route: 042
     Dates: start: 20070625
  2. ANAESTHETIC [Concomitant]

REACTIONS (1)
  - CONVULSION [None]
